FAERS Safety Report 4649962-8 (Version None)
Quarter: 2005Q2

REPORT INFORMATION
  Report Type: 
  Country: None (occurrence: None)
  Receive Date: 20050502
  Receipt Date: 20050422
  Transmission Date: 20051028
  Serious: Yes (Hospitalization)
  Sender: FDA-Public Use
  Company Number: PHBS2005SE05829

PATIENT
  Age: 84 Year
  Sex: Female

DRUGS (3)
  1. VOLTAREN [Suspect]
     Indication: OSTEOARTHRITIS
     Dosage: 2 TO 3 TAB/DAY
     Route: 048
     Dates: start: 20030701
  2. ACETAMINOPHEN [Concomitant]
  3. SPARKAL [Concomitant]

REACTIONS (2)
  - OSTEONECROSIS [None]
  - PLASTIC SURGERY [None]
